FAERS Safety Report 20660588 (Version 1)
Quarter: 2022Q1

REPORT INFORMATION
  Report Type: Spontaneous
  Country: CN (occurrence: CN)
  Receive Date: 20220331
  Receipt Date: 20220331
  Transmission Date: 20220423
  Serious: Yes (Hospitalization)
  Sender: FDA-Public Use
  Company Number: CN-PFIZER INC-202200468890

PATIENT
  Age: 32 Year
  Sex: Male
  Weight: 56 kg

DRUGS (2)
  1. RAPAMUNE [Suspect]
     Active Substance: SIROLIMUS
     Indication: Transplant rejection
     Dosage: 1 MG, 1X/DAY
     Route: 048
     Dates: start: 20220210, end: 20220309
  2. TACROLIMUS [Concomitant]
     Active Substance: TACROLIMUS
     Indication: Transplant rejection
     Dosage: 2.5 MG, 2X/DAY
     Route: 048
     Dates: start: 20211208, end: 20220315

REACTIONS (3)
  - Hepatic function abnormal [Unknown]
  - Arthralgia [Recovering/Resolving]
  - Pruritus [Recovering/Resolving]

NARRATIVE: CASE EVENT DATE: 20220224
